FAERS Safety Report 5123068-6 (Version None)
Quarter: 2006Q4

REPORT INFORMATION
  Report Type: 
  Country: None (occurrence: None)
  Receive Date: 20061009
  Receipt Date: 20060928
  Transmission Date: 20070319
  Serious: Yes (Hospitalization)
  Sender: FDA-Public Use
  Company Number: 2006AP04626

PATIENT
  Age: 70 Year
  Sex: Male

DRUGS (4)
  1. LOSEC [Suspect]
     Indication: REFLUX OESOPHAGITIS
     Route: 048
     Dates: start: 20060401, end: 20060411
  2. LOSEC [Suspect]
     Indication: GASTRITIS ATROPHIC
     Route: 048
     Dates: start: 20060401, end: 20060411
  3. LOSEC [Suspect]
     Route: 048
     Dates: start: 20060415, end: 20060425
  4. LOSEC [Suspect]
     Route: 048
     Dates: start: 20060415, end: 20060425

REACTIONS (9)
  - ALLERGIC GRANULOMATOUS ANGIITIS [None]
  - IMMUNE SYSTEM DISORDER [None]
  - INTERSTITIAL LUNG DISEASE [None]
  - LEUKOCYTOCLASTIC VASCULITIS [None]
  - LIVER DISORDER [None]
  - LUNG DISORDER [None]
  - MULTI-ORGAN DISORDER [None]
  - NEPHRITIS INTERSTITIAL [None]
  - RENAL DISORDER [None]
